FAERS Safety Report 5248303-5 (Version None)
Quarter: 2007Q1

REPORT INFORMATION
  Report Type: 
  Country: None (occurrence: None)
  Receive Date: 20070227
  Receipt Date: 20070215
  Transmission Date: 20070707
  Serious: Yes (Hospitalization)
  Sender: FDA-Public Use
  Company Number: BR-SHR-BR-2007-005688

PATIENT
  Age: 29 Year
  Sex: Female

DRUGS (2)
  1. BETASERON [Suspect]
     Indication: MULTIPLE SCLEROSIS
     Dosage: UNK MIU, EVERY 2D
     Route: 058
     Dates: start: 20061001
  2. TYLENOL [Concomitant]
     Indication: HEADACHE
     Dosage: 1 TAB(S), EVERY 2D
     Route: 048
     Dates: start: 20070101

REACTIONS (3)
  - CHILLS [None]
  - HOSPITALISATION [None]
  - MYALGIA [None]
